FAERS Safety Report 9695729 (Version 1)
Quarter: 2013Q4

REPORT INFORMATION
  Report Type: Spontaneous
  Country: NL (occurrence: NL)
  Receive Date: 20131119
  Receipt Date: 20131119
  Transmission Date: 20140711
  Serious: Yes (Death)
  Sender: FDA-Public Use
  Company Number: NL-PFIZER INC-2013327394

PATIENT
  Age: 66 Year
  Sex: Female
  Weight: 85 kg

DRUGS (1)
  1. LYRICA [Suspect]
     Indication: PAIN
     Dosage: 300 MG, 2X/DAY
     Dates: start: 20051102

REACTIONS (8)
  - Paresis [Fatal]
  - Myocardial infarction [Fatal]
  - Transient ischaemic attack [Fatal]
  - Dry mouth [Unknown]
  - Paraesthesia [Unknown]
  - Speech disorder [Unknown]
  - Tremor [Unknown]
  - Motor dysfunction [Unknown]
